FAERS Safety Report 19042277 (Version 2)
Quarter: 2022Q3

REPORT INFORMATION
  Report Type: Spontaneous
  Country: GB (occurrence: GB)
  Receive Date: 20210323
  Receipt Date: 20220725
  Transmission Date: 20221026
  Serious: Yes (Other)
  Sender: FDA-Public Use
  Company Number: None

PATIENT
  Age: 71 Year
  Sex: Male
  Weight: 87 kg

DRUGS (3)
  1. BICALUTAMIDE [Suspect]
     Active Substance: BICALUTAMIDE
     Indication: Prostate cancer
     Route: 048
     Dates: end: 202010
  2. LUPRON DEPOT [Suspect]
     Active Substance: LEUPROLIDE ACETATE
     Indication: Product used for unknown indication
     Dosage: PARENTERAL
     Dates: end: 202010
  3. EDOXABAN [Concomitant]
     Active Substance: EDOXABAN

REACTIONS (2)
  - Loss of consciousness [Recovered/Resolved with Sequelae]
  - Palpitations [Recovered/Resolved with Sequelae]
